FAERS Safety Report 16410846 (Version 1)
Quarter: 2019Q2

REPORT INFORMATION
  Report Type: Spontaneous
  Country: US (occurrence: US)
  Receive Date: 20190610
  Receipt Date: 20190610
  Transmission Date: 20190711
  Serious: No
  Sender: FDA-Public Use
  Company Number: US-ABBVIE-19S-163-2758165-00

PATIENT
  Sex: Female

DRUGS (1)
  1. POTASSIUM CHLORIDE. [Suspect]
     Active Substance: POTASSIUM CHLORIDE
     Indication: PRODUCT USED FOR UNKNOWN INDICATION
     Route: 048
     Dates: start: 201904, end: 201904

REACTIONS (4)
  - Erythema [Recovered/Resolved]
  - Peripheral swelling [Recovered/Resolved]
  - Pruritus generalised [Recovered/Resolved]
  - Swelling face [Recovered/Resolved]
